FAERS Safety Report 9008540 (Version 3)
Quarter: 2013Q2

REPORT INFORMATION
  Report Type: Report from Study
  Country: US (occurrence: US)
  Receive Date: 20130111
  Receipt Date: 20130401
  Transmission Date: 20140414
  Serious: Yes (Death)
  Sender: FDA-Public Use
  Company Number: US-ABBOTT-13P-163-1035133-00

PATIENT
  Age: 71 Year
  Sex: Male
  Weight: 79.45 kg

DRUGS (1)
  1. HUMIRA [Suspect]
     Indication: RHEUMATOID ARTHRITIS
     Route: 058
     Dates: start: 200704, end: 2012

REACTIONS (5)
  - Metastatic squamous cell carcinoma [Fatal]
  - Metastases to lung [Fatal]
  - Metastases to spine [Fatal]
  - Skin lesion [Fatal]
  - Migraine [Fatal]
